FAERS Safety Report 6028324-5 (Version None)
Quarter: 2009Q1

REPORT INFORMATION
  Report Type: 
  Country: None (occurrence: None)
  Receive Date: 20090106
  Receipt Date: 20081212
  Transmission Date: 20090719
  Serious: Yes (Other)
  Sender: FDA-Public Use
  Company Number: US-BAYER-200838134NA

PATIENT
  Age: 50 Year
  Sex: Female
  Weight: 54 kg

DRUGS (18)
  1. BETASERON [Suspect]
     Indication: RELAPSING-REMITTING MULTIPLE SCLEROSIS
     Dosage: TOTAL DAILY DOSE: 8 MIU
     Route: 058
     Dates: start: 20080906
  2. BETASERON [Suspect]
     Dosage: TOTAL DAILY DOSE: 2 MIU
     Route: 058
     Dates: start: 20080908, end: 20080918
  3. BETASERON [Suspect]
     Dosage: TOTAL DAILY DOSE: 8 MIU
     Route: 058
     Dates: start: 20081026, end: 20081103
  4. BETASERON [Suspect]
     Dosage: TOTAL DAILY DOSE: 6 MIU
     Route: 058
     Dates: start: 20081022, end: 20081024
  5. BETASERON [Suspect]
     Dosage: TOTAL DAILY DOSE: 6 MIU
     Route: 058
     Dates: start: 20081004, end: 20081016
  6. BETASERON [Suspect]
     Dosage: TOTAL DAILY DOSE: 4 MIU
     Route: 058
     Dates: start: 20080920, end: 20081002
  7. BETASERON [Suspect]
     Dosage: TOTAL DAILY DOSE: 8 MIU
     Route: 058
     Dates: start: 20081018, end: 20081020
  8. TYLENOL (CAPLET) [Concomitant]
     Indication: PREMEDICATION
     Dosage: TOTAL DAILY DOSE: 1000 MG
     Dates: start: 20080906
  9. SOLU-MEDROL [Concomitant]
     Indication: MULTIPLE SCLEROSIS
     Route: 042
     Dates: start: 20080808, end: 20080812
  10. SOLU-MEDROL [Concomitant]
     Route: 042
     Dates: start: 20080827, end: 20080829
  11. PREDNISONE [Concomitant]
     Indication: MULTIPLE SCLEROSIS
     Dates: start: 20080830, end: 20080915
  12. ASPIRIN [Concomitant]
     Indication: PROPHYLAXIS
     Dosage: TOTAL DAILY DOSE: 325 MG
     Dates: start: 20080725
  13. ENSURE [Concomitant]
     Indication: WEIGHT CONTROL
     Dates: start: 20080902
  14. MINERAL OIL [Concomitant]
     Indication: CONSTIPATION
     Dates: start: 20080808
  15. MULTI-VITAMIN SR [Concomitant]
     Indication: PROPHYLAXIS
     Dates: start: 19850101
  16. MINERAL ANTIOXIDANT SR [Concomitant]
     Indication: PROPHYLAXIS
     Dates: start: 19850101
  17. DOCUSATE SODIUM [Concomitant]
     Indication: CONSTIPATION PROPHYLAXIS
     Dosage: TOTAL DAILY DOSE: 100 MG
     Dates: start: 20080808
  18. VITAMIN B COMPLEX SR [Concomitant]
     Indication: MOOD SWINGS
     Dates: start: 20070201

REACTIONS (20)
  - ANION GAP DECREASED [None]
  - BLOOD GLUCOSE DECREASED [None]
  - BLOOD POTASSIUM INCREASED [None]
  - BLOOD SODIUM DECREASED [None]
  - BURNING SENSATION [None]
  - CHOLELITHIASIS [None]
  - CHROMATURIA [None]
  - FATIGUE [None]
  - HAEMORRHAGE [None]
  - HEPATIC ENZYME INCREASED [None]
  - HEPATIC FAILURE [None]
  - INCORRECT DOSE ADMINISTERED [None]
  - INCREASED TENDENCY TO BRUISE [None]
  - JAUNDICE [None]
  - LIVER INJURY [None]
  - MULTIPLE SCLEROSIS [None]
  - PROTEIN TOTAL DECREASED [None]
  - PRURITUS GENERALISED [None]
  - RED BLOOD CELL COUNT DECREASED [None]
  - YELLOW SKIN [None]
